FAERS Safety Report 7786627 (Version 2)
Quarter: 2013Q1

REPORT INFORMATION
  Report Type: Report from Study
  Country: US (occurrence: US)
  Receive Date: 20110129
  Receipt Date: 20130130
  Transmission Date: 20140127
  Serious: No
  Sender: FDA-Public Use
  Company Number: US-ABBOTT-10P-163-0653394-00

PATIENT
  Age: 74 Year
  Sex: Female

DRUGS (7)
  1. HUMIRA 40 MG/0.8 ML PEN [Suspect]
     Indication: ANKYLOSING SPONDYLITIS
  2. LEVOTHYROXINE [Concomitant]
     Indication: PRODUCT USED FOR UNKNOWN INDICATION
  3. PREMARIN [Concomitant]
     Indication: HORMONE REPLACEMENT THERAPY
  4. ALPRAZOLAM [Concomitant]
     Indication: PRODUCT USED FOR UNKNOWN INDICATION
     Dosage: 0.25MG-0.5MG AT BEDTIME
  5. DIOVAN [Concomitant]
     Indication: HYPERTENSION
  6. MEDROXYPROGESTERONE [Concomitant]
     Indication: HORMONE REPLACEMENT THERAPY
  7. VITAMINS [Concomitant]
     Indication: PRODUCT USED FOR UNKNOWN INDICATION

REACTIONS (2)
  - Cough [Recovered/Resolved]
  - Carbuncle [Unknown]
